FAERS Safety Report 9292824 (Version 1)
Quarter: 2013Q2

REPORT INFORMATION
  Report Type: Spontaneous
  Country: US (occurrence: None)
  Receive Date: 20130515
  Receipt Date: 20130515
  Transmission Date: 20140414
  Serious: Yes (Other)
  Sender: FDA-Public Use
  Company Number: None

PATIENT
  Age: 59 Year
  Sex: Female
  Weight: 53.98 kg

DRUGS (2)
  1. LIPITOR [Suspect]
     Indication: BLOOD CHOLESTEROL INCREASED
     Dosage: 1 TAB A DAY ONCE A DAY
     Dates: start: 20100702, end: 20111025
  2. ATORVASTATIN [Suspect]
     Indication: BLOOD CHOLESTEROL INCREASED
     Dosage: 1 TAB A DAY ONCE A DAY
     Dates: start: 20130125, end: 20130426

REACTIONS (5)
  - Myalgia [None]
  - Dental caries [None]
  - Muscular weakness [None]
  - Asthenia [None]
  - Muscle atrophy [None]
